FAERS Safety Report 7523083-9 (Version None)
Quarter: 2011Q2

REPORT INFORMATION
  Report Type: 
  Country: None (occurrence: None)
  Receive Date: 20110601
  Receipt Date: 20110601
  Transmission Date: 20111010
  Serious: No
  Sender: FDA-Public Use
  Company Number: None

PATIENT
  Age: 56 Year
  Sex: Female
  Weight: 70.8 kg

DRUGS (2)
  1. NORTRIPTYLINE HCL [Suspect]
     Indication: HEADACHE
     Dosage: 10 MG EVERY DAY PO
     Route: 048
     Dates: start: 20110406, end: 20110420
  2. NORTRIPTYLINE HCL [Suspect]
     Indication: PAIN
     Dosage: 10 MG EVERY DAY PO
     Route: 048
     Dates: start: 20110406, end: 20110420

REACTIONS (4)
  - PALPITATIONS [None]
  - ELECTROCARDIOGRAM QT PROLONGED [None]
  - SYNCOPE [None]
  - DIZZINESS [None]
